FAERS Safety Report 25691344 (Version 3)
Quarter: 2025Q3

REPORT INFORMATION
  Report Type: Report from Study
  Country: MX (occurrence: MX)
  Receive Date: 20250818
  Receipt Date: 20250904
  Transmission Date: 20251020
  Serious: Yes (Hospitalization, Other)
  Sender: NOVARTIS
  Company Number: MX-002147023-NVSC2025MX123309

PATIENT
  Age: 58 Year
  Sex: Female
  Weight: 103 kg

DRUGS (10)
  1. TASIGNA [Suspect]
     Active Substance: NILOTINIB
     Indication: Chronic myeloid leukaemia
     Dosage: UNK UNK, QD
     Route: 048
     Dates: start: 202410
  2. TASIGNA [Suspect]
     Active Substance: NILOTINIB
     Dosage: 200 MG, QD
     Route: 048
  3. TASIGNA [Suspect]
     Active Substance: NILOTINIB
     Dosage: 2 DOSAGE FORM (200 MG), BID
     Route: 048
     Dates: end: 202507
  4. TASIGNA [Suspect]
     Active Substance: NILOTINIB
     Dosage: 2 DOSAGE FORM (200 MG), QD
     Route: 048
     Dates: start: 20250718
  5. IMATINIB [Suspect]
     Active Substance: IMATINIB
     Indication: Chronic myeloid leukaemia
     Dosage: 2 DOSAGE FORM, BID
     Route: 048
     Dates: start: 201906, end: 202410
  6. METFORMIN HYDROCHLORIDE\VILDAGLIPTIN [Suspect]
     Active Substance: METFORMIN HYDROCHLORIDE\VILDAGLIPTIN
     Indication: Blood glucose increased
     Dosage: 1 DOSAGE FORM, BID
     Route: 048
     Dates: start: 2019
  7. LOSARTAN [Concomitant]
     Active Substance: LOSARTAN
     Indication: Hypertension
     Dosage: 1 DOSAGE FORM, (TABLET) (OF 50MG) BID
     Route: 048
     Dates: start: 2015
  8. BEZAFIBRATE [Concomitant]
     Active Substance: BEZAFIBRATE
     Indication: Blood triglycerides abnormal
     Dosage: 1 DOSAGE FORM, (TABLET) (OF 200MG) QD
     Route: 048
     Dates: start: 2019
  9. CLONAZEPAM [Concomitant]
     Active Substance: CLONAZEPAM
     Indication: Sleep disorder
     Dosage: 1 DOSAGE FORM, QD
     Route: 048
     Dates: start: 2000
  10. FLUOXETINE [Concomitant]
     Active Substance: FLUOXETINE HYDROCHLORIDE
     Indication: Depression
     Dosage: 1 DOSAGE FORM, QD (TABLET)
     Route: 048
     Dates: start: 2000

REACTIONS (7)
  - Cholelithiasis [Unknown]
  - Pain [Recovered/Resolved]
  - Liver injury [Unknown]
  - Weight decreased [Recovered/Resolved]
  - Off label use [Unknown]
  - Alanine aminotransferase increased [Unknown]
  - Aspartate aminotransferase increased [Unknown]

NARRATIVE: CASE EVENT DATE: 20241001
